FAERS Safety Report 19492684 (Version 1)
Quarter: 2021Q3

REPORT INFORMATION
  Report Type: Report from Study
  Country: US (occurrence: US)
  Receive Date: 20210705
  Receipt Date: 20210705
  Transmission Date: 20211014
  Serious: Yes (Hospitalization, Other)
  Sender: FDA-Public Use
  Company Number: US-SA-2020SA057126

PATIENT
  Age: 32 Year
  Sex: Female

DRUGS (1)
  1. ALEMTUZUMAB [Suspect]
     Active Substance: ALEMTUZUMAB
     Indication: MULTIPLE SCLEROSIS
     Dosage: 12 MG, QD
     Route: 041
     Dates: start: 20200224, end: 20200228

REACTIONS (31)
  - Asthenia [Unknown]
  - Pruritus [Not Recovered/Not Resolved]
  - Oral discomfort [Unknown]
  - Pyrexia [Not Recovered/Not Resolved]
  - Herpes zoster [Not Recovered/Not Resolved]
  - Hypoaesthesia [Not Recovered/Not Resolved]
  - Decreased appetite [Not Recovered/Not Resolved]
  - Malaise [Unknown]
  - Hypoaesthesia [Recovering/Resolving]
  - Back pain [Unknown]
  - Hospitalisation [Unknown]
  - Rash [Recovered/Resolved]
  - Fatigue [Recovering/Resolving]
  - Body temperature increased [Unknown]
  - Scar [Not Recovered/Not Resolved]
  - Scab [Not Recovered/Not Resolved]
  - Immunodeficiency [Not Recovered/Not Resolved]
  - Multiple sclerosis relapse [Not Recovered/Not Resolved]
  - Crying [Unknown]
  - Mood altered [Unknown]
  - Impaired healing [Not Recovered/Not Resolved]
  - Nausea [Recovering/Resolving]
  - Skin exfoliation [Not Recovered/Not Resolved]
  - Photophobia [Recovering/Resolving]
  - Constipation [Unknown]
  - Abdominal pain upper [Unknown]
  - Chills [Not Recovered/Not Resolved]
  - Vomiting [Unknown]
  - Lethargy [Not Recovered/Not Resolved]
  - Lymphadenopathy [Unknown]
  - Headache [Unknown]

NARRATIVE: CASE EVENT DATE: 202002
